FAERS Safety Report 8615623-3 (Version None)
Quarter: 2012Q3

REPORT INFORMATION
  Report Type: 
  Country: None (occurrence: None)
  Receive Date: 20120823
  Receipt Date: 20120813
  Transmission Date: 20120928
  Serious: Yes (Life-Threatening, Hospitalization, Other)
  Sender: FDA-Public Use
  Company Number: FR-JNJFOC-20120612094

PATIENT
  Age: 61 Year
  Sex: Female

DRUGS (5)
  1. ACETAMINOPHEN AND TRAMADOL HCL [Suspect]
     Route: 048
     Dates: start: 20120416, end: 20120416
  2. LEXOMIL [Interacting]
     Indication: SUICIDE ATTEMPT
     Dosage: 14 DF OF 6 MG AT ONCE
     Route: 048
     Dates: start: 20120416, end: 20120416
  3. ACETAMINOPHEN AND TRAMADOL HCL [Suspect]
     Indication: PAIN
     Route: 048
  4. NEXEN [Concomitant]
     Indication: PRODUCT USED FOR UNKNOWN INDICATION
     Route: 065
  5. OMEPRAZOLE [Concomitant]
     Indication: PRODUCT USED FOR UNKNOWN INDICATION
     Route: 065

REACTIONS (5)
  - COMA [None]
  - PROTHROMBIN TIME SHORTENED [None]
  - DRUG INTERACTION [None]
  - BRADYPNOEA [None]
  - MULTIPLE DRUG OVERDOSE INTENTIONAL [None]
